FAERS Safety Report 11698519 (Version 1)
Quarter: 2015Q4

REPORT INFORMATION
  Report Type: Spontaneous
  Country: US (occurrence: US)
  Receive Date: 20151104
  Receipt Date: 20151104
  Transmission Date: 20160304
  Serious: Yes (Disabling, Other)
  Sender: FDA-Public Use
  Company Number: US-ASTELLAS-2015US040094

PATIENT
  Sex: Female

DRUGS (1)
  1. VESICARE [Suspect]
     Active Substance: SOLIFENACIN SUCCINATE
     Indication: PRODUCT USED FOR UNKNOWN INDICATION
     Route: 048

REACTIONS (6)
  - Adverse event [Unknown]
  - Bladder disorder [Unknown]
  - Intentional overdose [Unknown]
  - Inappropriate schedule of drug administration [Unknown]
  - Multiple sclerosis [Unknown]
  - Wheelchair user [Unknown]
